FAERS Safety Report 8214950-1 (Version None)
Quarter: 2012Q1

REPORT INFORMATION
  Report Type: 
  Country: None (occurrence: None)
  Receive Date: 20120316
  Receipt Date: 20120312
  Transmission Date: 20120608
  Serious: No
  Sender: FDA-Public Use
  Company Number: US-PFIZER INC-2012009633

PATIENT

DRUGS (1)
  1. TORISEL [Suspect]
     Dosage: UNK

REACTIONS (1)
  - CREATININE RENAL CLEARANCE ABNORMAL [None]
